FAERS Safety Report 8617298-6 (Version None)
Quarter: 2012Q3

REPORT INFORMATION
  Report Type: 
  Country: None (occurrence: None)
  Receive Date: 20120823
  Receipt Date: 20120814
  Transmission Date: 20120928
  Serious: Yes (Hospitalization)
  Sender: FDA-Public Use
  Company Number: ES-ASTRAZENECA-2012SE57749

PATIENT
  Age: 26 Year
  Sex: Male

DRUGS (6)
  1. RISPERIDONE [Interacting]
  2. TOPIRAMATE [Interacting]
  3. RIVOTRIL SOLUTION [Interacting]
     Route: 048
  4. FLURAZEPAM [Interacting]
  5. QUETIAPINE [Suspect]
     Indication: AGGRESSION
     Route: 048
  6. BIPERIDENE RETARD [Interacting]

REACTIONS (2)
  - RHABDOMYOLYSIS [None]
  - DRUG INTERACTION [None]
